FAERS Safety Report 7517537-9 (Version None)
Quarter: 2011Q2

REPORT INFORMATION
  Report Type: 
  Country: None (occurrence: None)
  Receive Date: 20110601
  Receipt Date: 20110518
  Transmission Date: 20111010
  Serious: Yes (Hospitalization, Other)
  Sender: FDA-Public Use
  Company Number: DE-ELI_LILLY_AND_COMPANY-DE201105005019

PATIENT
  Sex: Male

DRUGS (1)
  1. FORTEO [Suspect]
     Indication: OSTEOPOROSIS
     Dosage: UNK, QD
     Route: 058
     Dates: start: 20100226

REACTIONS (6)
  - SEPSIS [None]
  - INTERVERTEBRAL DISC OPERATION [None]
  - SURGERY [None]
  - DIPLEGIA [None]
  - LOSS OF CONTROL OF LEGS [None]
  - PAIN [None]
